FAERS Safety Report 8503980-8 (Version None)
Quarter: 2012Q3

REPORT INFORMATION
  Report Type: 
  Country: None (occurrence: None)
  Receive Date: 20120711
  Receipt Date: 20120703
  Transmission Date: 20120928
  Serious: Yes (Life-Threatening, Hospitalization)
  Sender: FDA-Public Use
  Company Number: FR-009507513-1207FRA000229

PATIENT

DRUGS (4)
  1. METFORMIN HYDROCHLORIDE [Concomitant]
  2. COTRIATEC [Concomitant]
     Indication: HYPERTENSION
  3. IRBESARTAN [Concomitant]
     Indication: HYPERTENSION
  4. SITAGLIPTIN PHOSPHATE [Suspect]
     Indication: TYPE 2 DIABETES MELLITUS
     Dosage: UNK
     Route: 048
     Dates: start: 20120202, end: 20120101

REACTIONS (2)
  - RENAL FAILURE ACUTE [None]
  - COMA [None]
